FAERS Safety Report 9267711 (Version 2)
Quarter: 2014Q1

REPORT INFORMATION
  Report Type: Report from Study
  Country: US (occurrence: US)
  Receive Date: 20130502
  Receipt Date: 20140108
  Transmission Date: 20141002
  Serious: Yes (Hospitalization)
  Sender: FDA-Public Use
  Company Number: US-ALEXION-A201200868

PATIENT
  Sex: Male

DRUGS (2)
  1. SOLIRIS [Suspect]
     Indication: HAEMOLYTIC URAEMIC SYNDROME
     Dosage: UNK
     Route: 042
  2. CHEMOTHERAPEUTICS NOS [Concomitant]
     Indication: PANCREATIC CARCINOMA
     Dosage: UNK
     Route: 065

REACTIONS (2)
  - Blood potassium increased [Recovered/Resolved]
  - Hyperkalaemia [Recovered/Resolved]
